FAERS Safety Report 7419427-9 (Version None)
Quarter: 2011Q2

REPORT INFORMATION
  Report Type: 
  Country: None (occurrence: None)
  Receive Date: 20110417
  Receipt Date: 20110404
  Transmission Date: 20111010
  Serious: Yes (Hospitalization)
  Sender: FDA-Public Use
  Company Number: US-MYLANLABS-2011S1007103

PATIENT
  Age: 75 Year
  Sex: Female

DRUGS (4)
  1. METRONIDAZOLE [Concomitant]
     Dosage: TAKEN DAILY
     Route: 065
  2. PARACETAMOL [Concomitant]
     Dosage: TAKEN DAILY
     Route: 065
  3. OXYCODONE [Concomitant]
     Dosage: TAKEN DAILY
     Route: 065
  4. METFORMIN [Suspect]
     Indication: DIABETES MELLITUS
     Route: 065

REACTIONS (4)
  - ACIDOSIS [None]
  - HYPOGLYCAEMIA [None]
  - CONFUSIONAL STATE [None]
  - PANCREATITIS ACUTE [None]
